FAERS Safety Report 19619690 (Version 2)
Quarter: 2022Q2

REPORT INFORMATION
  Report Type: Spontaneous
  Country: US (occurrence: None)
  Receive Date: 20210728
  Receipt Date: 20220621
  Transmission Date: 20220721
  Serious: Yes (Other)
  Sender: FDA-Public Use
  Company Number: US-ROCHE-2754329

PATIENT
  Sex: Female

DRUGS (5)
  1. CAPECITABINE [Suspect]
     Active Substance: CAPECITABINE
     Indication: Product used for unknown indication
     Dosage: 14 DAYS ON, 7 DAYS OFF
     Route: 065
  2. TUKYSA [Suspect]
     Active Substance: TUCATINIB
     Indication: Breast cancer female
     Route: 065
     Dates: end: 20210511
  3. AMLODIPINE [Concomitant]
     Active Substance: AMLODIPINE BESYLATE
  4. XARELTO [Concomitant]
     Active Substance: RIVAROXABAN
  5. SERTRALINE [Concomitant]
     Active Substance: SERTRALINE HYDROCHLORIDE

REACTIONS (16)
  - Acne [Unknown]
  - Arthralgia [Unknown]
  - Joint swelling [Unknown]
  - Pruritus [Unknown]
  - Erythema [Unknown]
  - Neuropathy peripheral [Unknown]
  - Asthenia [Unknown]
  - Lethargy [Unknown]
  - Tremor [Unknown]
  - Stomatitis [Unknown]
  - Eye disorder [Unknown]
  - Epistaxis [Unknown]
  - Abdominal discomfort [Unknown]
  - Diarrhoea [Unknown]
  - Nausea [Unknown]
  - Vomiting [Unknown]
